FAERS Safety Report 9409605 (Version 2)
Quarter: 2013Q4

REPORT INFORMATION
  Report Type: Spontaneous
  Country: JP (occurrence: None)
  Receive Date: 20130426
  Receipt Date: 20131118
  Transmission Date: 20140711
  Serious: Yes (Hospitalization, Other)
  Sender: FDA-Public Use
  Company Number: ENT 2013-0067

PATIENT
  Age: 85 Year
  Sex: Male

DRUGS (2)
  1. COMTAN (ENTACAPONE) [Suspect]
     Route: 048
  2. L-DOPA [Concomitant]

REACTIONS (2)
  - Pneumonia aspiration [None]
  - Cholecystitis acute [None]
